FAERS Safety Report 9527872 (Version 3)
Quarter: 2013Q4

REPORT INFORMATION
  Report Type: Spontaneous
  Country: US (occurrence: US)
  Receive Date: 20130917
  Receipt Date: 20131030
  Transmission Date: 20140711
  Serious: Yes (Death)
  Sender: FDA-Public Use
  Company Number: US-PFIZER INC-2013263041

PATIENT
  Age: 85 Year
  Sex: Female

DRUGS (2)
  1. SUTENT [Suspect]
     Indication: NEUROENDOCRINE TUMOUR
     Dosage: 37.5 MG, 1X/DAY, CYCLIC (4 WKS ON 2 WKS OFF)
     Route: 048
     Dates: start: 20130517, end: 20130730
  2. AFINITOR [Suspect]
     Indication: NEUROENDOCRINE TUMOUR
     Dosage: 10 MG, 1X/DAY (QD)
     Route: 048
     Dates: start: 20130815, end: 20130820

REACTIONS (3)
  - Disease progression [Fatal]
  - Neuroendocrine tumour [Fatal]
  - Constipation [Unknown]
